FAERS Safety Report 17325342 (Version 3)
Quarter: 2020Q1

REPORT INFORMATION
  Report Type: Spontaneous
  Country: JP (occurrence: JP)
  Receive Date: 20200127
  Receipt Date: 20200214
  Transmission Date: 20200409
  Serious: Yes (Other)
  Sender: FDA-Public Use
  Company Number: JP-TEVA-2019-JP-1156467

PATIENT
  Age: 88 Year
  Sex: Female
  Weight: 32.9 kg

DRUGS (10)
  1. AZILECT [Suspect]
     Active Substance: RASAGILINE MESYLATE
     Indication: PARKINSON^S DISEASE
     Dosage: 1 MILLIGRAM DAILY;
     Route: 048
     Dates: start: 20191024, end: 20191204
  2. NEUPRO [Suspect]
     Active Substance: ROTIGOTINE
     Indication: PARKINSON^S DISEASE
     Dosage: 18 MILLIGRAM DAILY;
     Route: 065
  3. MAGNESIUM OXIDE. [Concomitant]
     Active Substance: MAGNESIUM OXIDE
  4. LANSOPRAZOLE. [Concomitant]
     Active Substance: LANSOPRAZOLE
  5. BROTIZOLAM [Concomitant]
     Active Substance: BROTIZOLAM
  6. DAIKENCHUTO [Concomitant]
     Active Substance: HERBALS
  7. ENTACAPONE. [Suspect]
     Active Substance: ENTACAPONE
     Indication: PARKINSON^S DISEASE
     Dosage: 200 MILLIGRAM DAILY;
     Route: 048
  8. TRERIEF [Concomitant]
     Active Substance: ZONISAMIDE
  9. DOPACOL [Suspect]
     Active Substance: CARBIDOPA\LEVODOPA
     Indication: PARKINSON^S DISEASE
     Dosage: 600 MILLIGRAM DAILY;
     Route: 048
  10. NOURIAST [Suspect]
     Active Substance: ISTRADEFYLLINE
     Indication: PARKINSON^S DISEASE
     Dosage: 20 MILLIGRAM DAILY;
     Route: 048

REACTIONS (3)
  - Urinary tract infection [Recovering/Resolving]
  - Hypertension [Recovering/Resolving]
  - Pneumonia [Recovering/Resolving]

NARRATIVE: CASE EVENT DATE: 20191112
